FAERS Safety Report 19257839 (Version 1)
Quarter: 2021Q2

REPORT INFORMATION
  Report Type: Report from Study
  Country: NZ (occurrence: NZ)
  Receive Date: 20210514
  Receipt Date: 20210514
  Transmission Date: 20210717
  Serious: Yes (Death, Other)
  Sender: FDA-Public Use
  Company Number: NZ-SUN PHARMACEUTICAL INDUSTRIES LTD-2021R1-296500

PATIENT
  Age: 47 Year
  Sex: Male

DRUGS (1)
  1. CARBOPLATIN. [Suspect]
     Active Substance: CARBOPLATIN
     Indication: TESTICULAR SEMINOMA (PURE) STAGE I
     Dosage: TWO CYCLES AUC7
     Route: 065

REACTIONS (2)
  - Pneumonitis [Fatal]
  - Disease recurrence [Unknown]
